FAERS Safety Report 18393850 (Version 2)
Quarter: 2020Q4

REPORT INFORMATION
  Report Type: Spontaneous
  Country: US (occurrence: US)
  Receive Date: 20201016
  Receipt Date: 20201104
  Transmission Date: 20210114
  Serious: Yes (Other)
  Sender: FDA-Public Use
  Company Number: US-BIOGEN-2020BI00935141

PATIENT
  Sex: Male

DRUGS (1)
  1. TYSABRI [Suspect]
     Active Substance: NATALIZUMAB
     Indication: MULTIPLE SCLEROSIS
     Route: 065
     Dates: start: 20131112, end: 20181011

REACTIONS (4)
  - Seizure [Recovered/Resolved]
  - Transient ischaemic attack [Recovered/Resolved]
  - Parkinson^s disease [Recovered/Resolved]
  - Amnesia [Not Recovered/Not Resolved]
